FAERS Safety Report 13610644 (Version 2)
Quarter: 2017Q3

REPORT INFORMATION
  Report Type: Spontaneous
  Country: DE (occurrence: DE)
  Receive Date: 20170605
  Receipt Date: 20170720
  Transmission Date: 20171127
  Serious: Yes (Other)
  Sender: FDA-Public Use
  Company Number: DE-VIIV HEALTHCARE LIMITED-DE2017GSK082492

PATIENT
  Age: 57 Year
  Sex: Male
  Weight: 79 kg

DRUGS (3)
  1. TIVICAY [Suspect]
     Active Substance: DOLUTEGRAVIR SODIUM
     Indication: HIV INFECTION
     Dosage: 50 MG, UNK
     Dates: start: 201704
  2. FLUCONAZOL [Concomitant]
     Active Substance: FLUCONAZOLE
     Indication: OESOPHAGEAL CANDIDIASIS
     Dosage: UNK
     Dates: start: 201703, end: 201704
  3. TRUVADA [Concomitant]
     Active Substance: EMTRICITABINE\TENOFOVIR DISOPROXIL FUMARATE
     Indication: HIV INFECTION
     Dosage: UNK
     Dates: start: 201704

REACTIONS (1)
  - Central nervous system lymphoma [Not Recovered/Not Resolved]

NARRATIVE: CASE EVENT DATE: 201705
